FAERS Safety Report 25602449 (Version 1)
Quarter: 2025Q3

REPORT INFORMATION
  Report Type: Spontaneous
  Country: US (occurrence: US)
  Receive Date: 20250724
  Receipt Date: 20250724
  Transmission Date: 20251020
  Serious: No
  Sender: BAUSCH AND LOMB
  Company Number: US-BAUSCHBL-2025BNL012572

PATIENT
  Age: 70 Year
  Sex: Female

DRUGS (2)
  1. ERYTHROMYCIN [Suspect]
     Active Substance: ERYTHROMYCIN
     Indication: Blepharitis
     Dosage: EVENING
     Route: 047
     Dates: start: 20250710
  2. OFLOXACIN OPHTHALMIC [Suspect]
     Active Substance: OFLOXACIN
     Indication: Product used for unknown indication
     Route: 065

REACTIONS (3)
  - Drug hypersensitivity [Unknown]
  - Drug ineffective [Unknown]
  - Wrong technique in product usage process [Unknown]
